FAERS Safety Report 4667141-5 (Version None)
Quarter: 2005Q2

REPORT INFORMATION
  Report Type: 
  Country: None (occurrence: None)
  Receive Date: 20050520
  Receipt Date: 20040330
  Transmission Date: 20051028
  Serious: Yes (Other)
  Sender: FDA-Public Use
  Company Number: PHEH2004US03651

PATIENT
  Age: 75 Year
  Sex: Female

DRUGS (9)
  1. ACETYLSALICYLIC ACID [Concomitant]
     Dosage: 325 MG, QD
  2. PLAVIX [Concomitant]
     Dosage: 75 MG, QD
  3. FUROSEMIDE [Concomitant]
     Dosage: 40 MG, QD
  4. POTASSIUM CHLORIDE [Concomitant]
     Dosage: 20 UNK, BID
  5. ISOSORBIDE MONONITRATE [Concomitant]
     Dosage: 60 MG, QD
  6. TOPROL-XL [Concomitant]
     Dosage: 25 MG, QD
  7. PRAVACHOL [Concomitant]
     Dosage: 20 MG, QHS
  8. ANASTROZOLE [Concomitant]
     Dosage: 1 MG, QD
  9. ZOMETA [Suspect]
     Indication: BREAST CANCER METASTATIC
     Dosage: 4 MG, QMO
     Route: 042
     Dates: start: 20020901, end: 20040501

REACTIONS (7)
  - DENTAL CARIES [None]
  - IMPAIRED HEALING [None]
  - JAW DISORDER [None]
  - OSTEONECROSIS [None]
  - TOOTH ABSCESS [None]
  - TOOTH EXTRACTION [None]
  - TOOTHACHE [None]
